FAERS Safety Report 4564570-5 (Version None)
Quarter: 2005Q1

REPORT INFORMATION
  Report Type: 
  Country: None (occurrence: None)
  Receive Date: 20050126
  Receipt Date: 20050114
  Transmission Date: 20050727
  Serious: Yes (Hospitalization)
  Sender: FDA-Public Use
  Company Number: HQWYE430119AUG04

PATIENT
  Age: 49 Year
  Sex: Female

DRUGS (7)
  1. EUPANTOL (PANTOPRAZOLE, TABLET, DELAYED RELEASE) [Suspect]
     Indication: HIATUS HERNIA
     Dosage: ^SOME TIME(S) SOME DF^ ORAL
     Route: 048
     Dates: start: 20040701, end: 20040802
  2. ACETAMINOPHEN W/ PROPOXYPHENE HCL [Concomitant]
  3. ALPRAZOLAM [Concomitant]
  4. LUTENYL (NOMEGESTROL ACETATE) [Concomitant]
  5. METEOSPASMYL (ALVERINE CITRATE/DL-METHIONINE) [Concomitant]
  6. MEDIATOR (BENFLUOREX HYDROCHLORIDE) [Concomitant]
  7. OMEPRAZOLE [Concomitant]

REACTIONS (5)
  - AGRANULOCYTOSIS [None]
  - ASTHENIA [None]
  - BONE MARROW TOXICITY [None]
  - NEUTROPENIA [None]
  - RETICULOCYTE COUNT INCREASED [None]
